FAERS Safety Report 18067941 (Version 5)
Quarter: 2021Q2

REPORT INFORMATION
  Report Type: Spontaneous
  Country: JP (occurrence: JP)
  Receive Date: 20200724
  Receipt Date: 20210608
  Transmission Date: 20210717
  Serious: Yes (Hospitalization, Other)
  Sender: FDA-Public Use
  Company Number: JP-BRISTOL-MYERS SQUIBB COMPANY-BMS-2019-098837

PATIENT
  Age: 65 Year
  Sex: Female
  Weight: 36.2 kg

DRUGS (16)
  1. OPDIVO [Suspect]
     Active Substance: NIVOLUMAB
     Indication: HEAD AND NECK CANCER
     Dosage: 240 MILLIGRAM
     Route: 041
     Dates: start: 20190625, end: 20200512
  2. PREDNISOLONE. [Suspect]
     Active Substance: PREDNISOLONE
     Dosage: 17.5 MG, EVERYDAY
     Route: 065
     Dates: start: 20191225, end: 20200129
  3. PREDNISOLONE. [Suspect]
     Active Substance: PREDNISOLONE
     Indication: ERYTHEMA MULTIFORME
     Dosage: 10 MG, EVERYDAY
     Route: 065
     Dates: start: 20191029, end: 20191107
  4. PREDNISOLONE. [Suspect]
     Active Substance: PREDNISOLONE
     Dosage: 12 MG, EVERYDAY
     Route: 065
     Dates: start: 20200326, end: 20200422
  5. NEXIUM [Concomitant]
     Active Substance: ESOMEPRAZOLE MAGNESIUM
     Indication: PRODUCT USED FOR UNKNOWN INDICATION
     Dosage: 20 MG, EVERYDAY
     Route: 065
  6. PREDNISOLONE. [Suspect]
     Active Substance: PREDNISOLONE
     Dosage: 5 MG, EVERYDAY
     Route: 065
     Dates: start: 20191108, end: 20191129
  7. PREDNISOLONE. [Suspect]
     Active Substance: PREDNISOLONE
     Dosage: 8 MG, EVERYDAY
     Route: 065
     Dates: start: 20200625, end: 20200721
  8. PREDNISOLONE. [Suspect]
     Active Substance: PREDNISOLONE
     Dosage: 10 MG, EVERYDAY
     Route: 065
     Dates: start: 20200423, end: 20200624
  9. PREDONINE [PREDNISOLONE ACETATE] [Concomitant]
     Active Substance: PREDNISOLONE ACETATE
     Indication: PRODUCT USED FOR UNKNOWN INDICATION
     Dosage: UNK
     Route: 065
  10. PREDNISOLONE. [Suspect]
     Active Substance: PREDNISOLONE
     Dosage: 20 MG, EVERYDAY
     Route: 065
     Dates: start: 20191211, end: 20191224
  11. L?CARBOCISTEINE [Suspect]
     Active Substance: CARBOCYSTEINE
     Indication: PRODUCT USED FOR UNKNOWN INDICATION
     Dosage: UNK
     Route: 065
     Dates: start: 20190903
  12. PREDNISOLONE. [Suspect]
     Active Substance: PREDNISOLONE
     Indication: STEVENS-JOHNSON SYNDROME
     Dosage: 20 MG, EVERYDAY
     Route: 065
     Dates: start: 20191008
  13. PREDNISOLONE. [Suspect]
     Active Substance: PREDNISOLONE
     Dosage: 15 MG, EVERYDAY
     Route: 065
     Dates: start: 20200130, end: 20200212
  14. CLOTIAZEPAM [Concomitant]
     Active Substance: CLOTIAZEPAM
     Indication: PRODUCT USED FOR UNKNOWN INDICATION
     Dosage: 5 MG, EVERYDAY
     Route: 065
  15. RACOL NF [Concomitant]
     Active Substance: AMINO ACIDS\DEXTROSE\ELECTROLYTES NOS\SOYBEAN OIL\VITAMINS
     Indication: PRODUCT USED FOR UNKNOWN INDICATION
     Dosage: 300 GRAM, Q8H
     Route: 065
     Dates: start: 20190329
  16. PREDNISOLONE. [Suspect]
     Active Substance: PREDNISOLONE
     Dosage: 14 MG, EVERYDAY
     Route: 065
     Dates: start: 20200213, end: 20200325

REACTIONS (11)
  - Keratitis [Recovered/Resolved]
  - Oral mucosa erosion [Recovering/Resolving]
  - Erythema [Recovering/Resolving]
  - Enanthema [Unknown]
  - Drug eruption [Unknown]
  - Rash [Recovering/Resolving]
  - Blood thyroid stimulating hormone increased [Recovering/Resolving]
  - Blood corticotrophin increased [Recovering/Resolving]
  - Erythema multiforme [Recovering/Resolving]
  - Eye pruritus [Recovering/Resolving]
  - Hypozincaemia [Not Recovered/Not Resolved]

NARRATIVE: CASE EVENT DATE: 201909
